FAERS Safety Report 8795871 (Version 2)
Quarter: 2012Q4

REPORT INFORMATION
  Report Type: 
  Country: CA (occurrence: CA)
  Receive Date: 20120919
  Receipt Date: 20121119
  Transmission Date: 20130627
  Serious: Yes (Other)
  Sender: FDA-Public Use
  Company Number: CA-JNJFOC-20120907910

PATIENT
  Age: 90 Year
  Sex: Female
  Weight: 59 kg

DRUGS (22)
  1. XARELTO [Suspect]
     Indication: CEREBROVASCULAR ACCIDENT PROPHYLAXIS
     Dosage: duration of drug administration = 6 days
     Route: 048
     Dates: start: 20120405, end: 20120410
  2. XARELTO [Suspect]
     Indication: CEREBROVASCULAR ACCIDENT PROPHYLAXIS
     Route: 048
     Dates: start: 20120410, end: 20120413
  3. XARELTO [Suspect]
     Indication: ATRIAL FIBRILLATION
     Dosage: duration of drug administration = 6 days
     Route: 048
     Dates: start: 20120405, end: 20120410
  4. XARELTO [Suspect]
     Indication: ATRIAL FIBRILLATION
     Route: 048
     Dates: start: 20120410, end: 20120413
  5. NIZORAL [Concomitant]
  6. CARDIZEM [Concomitant]
  7. CRESTOR [Concomitant]
  8. DOCUSATE SODIUM [Concomitant]
  9. FUROSEMIDE [Concomitant]
  10. METOPROLOL [Concomitant]
  11. MULTIVITAMINS [Concomitant]
  12. NITROSTAT [Concomitant]
  13. PARIET [Concomitant]
  14. PREMARIN [Concomitant]
  15. SYNTHROID [Concomitant]
  16. VAGIFEM [Concomitant]
  17. VITAMIN B1 [Concomitant]
  18. VITAMIN D [Concomitant]
  19. ATIVAN [Concomitant]
     Route: 065
  20. WARFARIN [Concomitant]
  21. ACTONEL [Concomitant]
     Route: 065
  22. BETNOVATE [Concomitant]
     Route: 065

REACTIONS (4)
  - Balance disorder [Recovering/Resolving]
  - Headache [Recovering/Resolving]
  - Nausea [Recovering/Resolving]
  - Dizziness [Recovering/Resolving]
